FAERS Safety Report 13456816 (Version 2)
Quarter: 2018Q2

REPORT INFORMATION
  Report Type: Spontaneous
  Country: US (occurrence: US)
  Receive Date: 20170418
  Receipt Date: 20180413
  Transmission Date: 20180711
  Serious: No
  Sender: FDA-Public Use
  Company Number: US-ASTRAZENECA-2017SE38865

PATIENT
  Sex: Male
  Weight: 102.1 kg

DRUGS (8)
  1. METOPROLOL TARTRATE. [Suspect]
     Active Substance: METOPROLOL TARTRATE
     Indication: HEART RATE DECREASED
     Route: 048
  2. BRILINTA [Suspect]
     Active Substance: TICAGRELOR
     Indication: STENT PLACEMENT
     Route: 048
     Dates: start: 20160501
  3. ATORVASTATIN [Concomitant]
     Active Substance: ATORVASTATIN
     Indication: BLOOD CHOLESTEROL ABNORMAL
     Route: 048
     Dates: start: 201605
  4. LANTUS [Concomitant]
     Active Substance: INSULIN GLARGINE
     Dosage: 15UNITS EVERY MORNING
     Route: 058
  5. METOPROLOL TARTRATE. [Suspect]
     Active Substance: METOPROLOL TARTRATE
     Indication: HEART RATE DECREASED
     Route: 048
     Dates: start: 201605
  6. BRILINTA [Suspect]
     Active Substance: TICAGRELOR
     Indication: STENT PLACEMENT
     Route: 048
     Dates: start: 20170501
  7. METFORMIN [Suspect]
     Active Substance: METFORMIN HYDROCHLORIDE
     Dosage: 1000 MG, EVERY 12 HOURS (NON-AZ DRUG)
     Route: 065
  8. BABY ASPIRIN [Concomitant]
     Active Substance: ASPIRIN
     Route: 048
     Dates: start: 201605

REACTIONS (6)
  - Coagulation time prolonged [Recovered/Resolved]
  - Muscle strain [Recovered/Resolved]
  - Increased tendency to bruise [Recovered/Resolved]
  - Drug dose omission [Recovered/Resolved]
  - Blood glucose fluctuation [Recovering/Resolving]
  - Dry mouth [Not Recovered/Not Resolved]
